FAERS Safety Report 7560809-2 (Version None)
Quarter: 2011Q2

REPORT INFORMATION
  Report Type: 
  Country: None (occurrence: None)
  Receive Date: 20110621
  Receipt Date: 20110609
  Transmission Date: 20111010
  Serious: Yes (Hospitalization, Other)
  Sender: FDA-Public Use
  Company Number: CA-ROCHE-782334

PATIENT
  Sex: Male

DRUGS (3)
  1. METFORMIN HCL [Concomitant]
  2. PEGASYS [Suspect]
     Route: 058
     Dates: start: 20100729, end: 20110606
  3. COPEGUS [Suspect]
     Route: 048
     Dates: start: 20100729, end: 20110606

REACTIONS (5)
  - DYSARTHRIA [None]
  - CONFUSIONAL STATE [None]
  - FALL [None]
  - DYSPHAGIA [None]
  - HAEMOGLOBIN DECREASED [None]
